FAERS Safety Report 24047708 (Version 3)
Quarter: 2024Q3

REPORT INFORMATION
  Report Type: Spontaneous
  Country: US (occurrence: US)
  Receive Date: 20240703
  Receipt Date: 20240809
  Transmission Date: 20241017
  Serious: Yes (Other)
  Sender: NOVARTIS
  Company Number: US-002147023-NVSC2024US138145

PATIENT

DRUGS (1)
  1. KESIMPTA [Suspect]
     Active Substance: OFATUMUMAB
     Indication: Product used for unknown indication
     Dosage: UNK
     Route: 065

REACTIONS (7)
  - Multiple sclerosis relapse [Recovered/Resolved]
  - Monoplegia [Unknown]
  - Sensory disturbance [Recovered/Resolved]
  - Hypersensitivity [Not Recovered/Not Resolved]
  - Inflammation [Unknown]
  - Feeling abnormal [Unknown]
  - Vertigo [Unknown]
